FAERS Safety Report 15950651 (Version 1)
Quarter: 2019Q1

REPORT INFORMATION
  Report Type: Spontaneous
  Country: CA (occurrence: CA)
  Receive Date: 20190212
  Receipt Date: 20190212
  Transmission Date: 20190417
  Serious: Yes (Hospitalization, Other)
  Sender: FDA-Public Use
  Company Number: CA-JAZZ-2019-CA-001923

PATIENT
  Sex: Female

DRUGS (6)
  1. METHAMPHETAMINE [Suspect]
     Active Substance: METHAMPHETAMINE
     Indication: DRUG ABUSE
     Route: 065
  2. METHYLENEDIOXYMETHAMPHETAMINE [Suspect]
     Active Substance: MIDOMAFETAMINE
     Indication: DRUG ABUSE
  3. XYREM [Suspect]
     Active Substance: SODIUM OXYBATE
     Indication: DRUG ABUSE
     Route: 065
  4. HYDROMORPHONE HYDROCHLORIDE. [Suspect]
     Active Substance: HYDROMORPHONE HYDROCHLORIDE
     Indication: DRUG ABUSE
     Route: 065
  5. KETAMINE [Suspect]
     Active Substance: KETAMINE
     Indication: DRUG ABUSE
     Route: 065
  6. COCAINE [Suspect]
     Active Substance: COCAINE
     Indication: DRUG ABUSE
     Route: 065

REACTIONS (7)
  - Drug withdrawal syndrome [Recovered/Resolved]
  - Gait disturbance [Recovered/Resolved]
  - Endocarditis [Recovered/Resolved]
  - Substance abuse [Unknown]
  - Cardiac arrest [Recovered/Resolved]
  - Substance dependence [Recovered/Resolved]
  - Drug abuse [Unknown]
